FAERS Safety Report 17001722 (Version 1)
Quarter: 2019Q4

REPORT INFORMATION
  Report Type: Spontaneous
  Country: NL (occurrence: NL)
  Receive Date: 20191106
  Receipt Date: 20191106
  Transmission Date: 20200122
  Serious: Yes (Death, Other)
  Sender: FDA-Public Use
  Company Number: NL-TEVA-2019-NL-1131338

PATIENT
  Age: 68 Year
  Sex: Male
  Weight: 94 kg

DRUGS (13)
  1. HYDROXOCOBALAM 1 MG [Concomitant]
     Dosage: 1 INJECTION OF HYDROXOCOBALAM 1 MG , 1 MG
  2. PRADAXA [Concomitant]
     Active Substance: DABIGATRAN ETEXILATE MESYLATE
     Dosage: 2X CAPSULE PRADAXA 110MG
  3. PERINDOPRIL 2MG [Concomitant]
     Active Substance: PERINDOPRIL
     Dosage: 1 TABLET PERINDOPRIL 2MG , 2 MG
  4. CARBASAL 100MG [Concomitant]
     Dosage: 1 BAG OF CARBASAL 100MG , 100 MG 1 DAYS
  5. OMEPRAZOL MAAGSAPRESISTENTE CAPSULE, 20 MG (MILLIGRAM) [Suspect]
     Active Substance: OMEPRAZOLE SODIUM
     Indication: DYSPEPSIA
  6. TIMOLOL 5MG [Concomitant]
     Dosage: 1X P.D. TIMOLOL 5MG , 1 DOSAGE FORMS 1 DAYS
  7. HYLAN 0,15MG [Concomitant]
     Dosage: 2X P.D. HYLAN 0,15MG , 1 DOSAGE FORMS 12 HOURS
  8. SIMVASTATINE 40 MG [Concomitant]
     Active Substance: SIMVASTATIN
     Dosage: 1 TABLET SIMVASTATIN 40 MG , 40 MG 1 DAYS
  9. FINASTERIDE 5MG [Concomitant]
     Active Substance: FINASTERIDE
     Dosage: 1 TABLET FINASTERIDE 5MG , 5 MG
  10. CALC. CHEW 500MG [Concomitant]
     Dosage: X P.D. CALC. CHEW 500MG , 500 MG 1 DAYS
  11. OMEPRAZOL MAAGSAPRESISTENTE CAPSULE, 20 MG (MILLIGRAM) [Suspect]
     Active Substance: OMEPRAZOLE SODIUM
     Indication: DYSPEPSIA
     Route: 065
     Dates: start: 1977
  12. ATROVENT [Concomitant]
     Active Substance: IPRATROPIUM BROMIDE
     Dosage: IF NEEDED ATROVENT 20MCG , 20 MICROGRAM
  13. GLICLAZIDE 30MG [Concomitant]
     Dosage: 1 TABLET GLICLAZIDE 30MG , 30 MG 1 DAYS

REACTIONS (7)
  - Diarrhoea [Unknown]
  - Dementia Alzheimer^s type [Unknown]
  - Vascular dementia [Unknown]
  - Malaise [Unknown]
  - Transient ischaemic attack [Unknown]
  - Vitamin B12 deficiency [Unknown]
  - Pruritus [Recovered/Resolved]

NARRATIVE: CASE EVENT DATE: 2004
